FAERS Safety Report 5320687-9 (Version None)
Quarter: 2007Q2

REPORT INFORMATION
  Report Type: 
  Country: None (occurrence: None)
  Receive Date: 20070509
  Receipt Date: 20070427
  Transmission Date: 20071010
  Serious: Yes (Other)
  Sender: FDA-Public Use
  Company Number: GB-PFIZER INC-2007034379

PATIENT
  Age: 42 Year
  Sex: Female
  Weight: 60 kg

DRUGS (6)
  1. LYRICA [Suspect]
     Route: 048
  2. AMITRIPTYLINE HCL [Concomitant]
     Route: 048
  3. CYCLIZINE [Concomitant]
     Route: 048
  4. PARACETAMOL [Concomitant]
     Route: 048
  5. LEVOTHYROXINE SODIUM [Concomitant]
     Route: 048
  6. TRAMADOL HCL [Concomitant]
     Route: 048

REACTIONS (3)
  - DRUG DEPENDENCE [None]
  - HALLUCINATION [None]
  - HYPERHIDROSIS [None]
